FAERS Safety Report 20885518 (Version 1)
Quarter: 2022Q2

REPORT INFORMATION
  Report Type: Other
  Country: CN (occurrence: None)
  Receive Date: 20220527
  Receipt Date: 20220527
  Transmission Date: 20220721
  Serious: Yes (Other)
  Sender: FDA-Public Use
  Company Number: CN-ROCHE-2865948

PATIENT

DRUGS (3)
  1. BEVACIZUMAB [Suspect]
     Active Substance: BEVACIZUMAB
     Indication: Non-small cell lung cancer
     Route: 042
  2. CARBOPLATIN [Suspect]
     Active Substance: CARBOPLATIN
     Indication: Non-small cell lung cancer
     Dosage: FOR 4-6 CYCLES
     Route: 065
  3. PACLITAXEL [Suspect]
     Active Substance: PACLITAXEL
     Indication: Non-small cell lung cancer
     Dosage: FOR 4-6 CYCLES
     Route: 065

REACTIONS (11)
  - Neutropenia [Unknown]
  - Leukopenia [Unknown]
  - Bone marrow failure [Unknown]
  - Anaemia [Unknown]
  - Thrombocytopenia [Unknown]
  - Proteinuria [Unknown]
  - Haemorrhage [Unknown]
  - Hypertension [Unknown]
  - Cardiotoxicity [Unknown]
  - Embolism [Unknown]
  - Impaired healing [Unknown]
